FAERS Safety Report 5016845-3 (Version None)
Quarter: 2006Q2

REPORT INFORMATION
  Report Type: 
  Country: None (occurrence: None)
  Receive Date: 20060526
  Receipt Date: 20060512
  Transmission Date: 20061013
  Serious: Yes (Hospitalization)
  Sender: FDA-Public Use
  Company Number: CIP05003015

PATIENT
  Age: 83 Year
  Sex: Male

DRUGS (4)
  1. DANTRIUM [Suspect]
     Indication: CERVICAL MYELOPATHY
     Dosage: 1 DF TWICE DAILY, ORAL
     Route: 048
     Dates: start: 20050201, end: 20051208
  2. METHYCOBAL (MECOBALAMIN) [Concomitant]
  3. ANALGESICS [Concomitant]
  4. METHYCOBAL (MECOBALAMIN) [Concomitant]

REACTIONS (5)
  - COUGH [None]
  - DECREASED APPETITE [None]
  - DEHYDRATION [None]
  - PYREXIA [None]
  - RHABDOMYOLYSIS [None]
